FAERS Safety Report 13629205 (Version 1)
Quarter: 2017Q2

REPORT INFORMATION
  Report Type: Spontaneous
  Country: US (occurrence: US)
  Receive Date: 20170608
  Receipt Date: 20170608
  Transmission Date: 20170830
  Serious: Yes (Hospitalization, Other)
  Sender: FDA-Public Use
  Company Number: US-DSJP-DSU-2017-116839

PATIENT

DRUGS (3)
  1. SAVAYSA [Suspect]
     Active Substance: EDOXABAN TOSYLATE
     Indication: DEEP VEIN THROMBOSIS
     Dosage: 30 MG, QD
     Route: 048
     Dates: start: 20160808
  2. PHENYTOIN. [Suspect]
     Active Substance: PHENYTOIN
     Indication: SEIZURE
     Dosage: UNK
  3. KEPPRA [Concomitant]
     Active Substance: LEVETIRACETAM
     Indication: SEIZURE
     Dosage: UNK

REACTIONS (12)
  - Fall [Unknown]
  - Paranoia [Unknown]
  - Incontinence [Unknown]
  - Restlessness [Unknown]
  - Therapeutic response decreased [Unknown]
  - Cerebral ischaemia [Unknown]
  - Seizure [Unknown]
  - Pneumonia [Unknown]
  - Pleural effusion [Unknown]
  - Anxiety [Unknown]
  - Cerebral infarction [Unknown]
  - Confusional state [Unknown]

NARRATIVE: CASE EVENT DATE: 20161215
